FAERS Safety Report 7018837-1 (Version None)
Quarter: 2010Q3

REPORT INFORMATION
  Report Type: 
  Country: None (occurrence: None)
  Receive Date: 20100928
  Receipt Date: 20100923
  Transmission Date: 20110219
  Serious: Yes (Hospitalization)
  Sender: FDA-Public Use
  Company Number: US-PFIZER INC-2010121437

PATIENT
  Sex: Female

DRUGS (1)
  1. NIFEDIPINE [Suspect]
     Indication: HYPERTENSION
     Dosage: DAILY
     Route: 048

REACTIONS (2)
  - CEREBROVASCULAR ACCIDENT [None]
  - VOMITING [None]
